FAERS Safety Report 9984573 (Version 1)
Quarter: 2014Q1

REPORT INFORMATION
  Report Type: Spontaneous
  Country: US (occurrence: US)
  Receive Date: 20140307
  Receipt Date: 20140307
  Transmission Date: 20141002
  Serious: No
  Sender: FDA-Public Use
  Company Number: US-BAYER-2014-035525

PATIENT
  Age: 55 Year
  Sex: Female

DRUGS (1)
  1. CLIMARA [Suspect]
     Route: 062

REACTIONS (1)
  - Night sweats [None]
